FAERS Safety Report 11062871 (Version 2)
Quarter: 2015Q2

REPORT INFORMATION
  Report Type: Spontaneous
  Country: BR (occurrence: BR)
  Receive Date: 20150424
  Receipt Date: 20150506
  Transmission Date: 20150821
  Serious: Yes (Other)
  Sender: FDA-Public Use
  Company Number: BR-PFIZER INC-2015134645

PATIENT
  Age: 54 Year
  Sex: Male
  Weight: 100 kg

DRUGS (1)
  1. UPLYSO [Suspect]
     Active Substance: TALIGLUCERASE ALFA
     Indication: GAUCHER^S DISEASE
     Dosage: UNK
     Dates: start: 2010, end: 201502

REACTIONS (2)
  - Platelet count decreased [Unknown]
  - Serum ferritin increased [Unknown]

NARRATIVE: CASE EVENT DATE: 201502
